FAERS Safety Report 5885147-5 (Version None)
Quarter: 2008Q3

REPORT INFORMATION
  Report Type: 
  Country: None (occurrence: None)
  Receive Date: 20080912
  Receipt Date: 20080829
  Transmission Date: 20090109
  Serious: Yes (Death)
  Sender: FDA-Public Use
  Company Number: 2008S1015870

PATIENT
  Sex: Female

DRUGS (2)
  1. DURAGESIC-75 [Suspect]
     Indication: PAIN
     Dosage: EVERY HOUR; TRANSDERMAL
     Route: 062
     Dates: start: 20050804
  2. FENTANYL TRANSDERMAL SYSTEM [Suspect]
     Indication: PAIN
     Dosage: EVERY HOUR;TRANSDERMAL
     Route: 062
     Dates: start: 20050829

REACTIONS (2)
  - RESPIRATORY ARREST [None]
  - THERAPEUTIC AGENT TOXICITY [None]
